FAERS Safety Report 4562063-2 (Version None)
Quarter: 2005Q1

REPORT INFORMATION
  Report Type: 
  Country: None (occurrence: None)
  Receive Date: 20050127
  Receipt Date: 20050113
  Transmission Date: 20050727
  Serious: Yes (Other)
  Sender: FDA-Public Use
  Company Number: US-JNJFOC-20050103408

PATIENT
  Sex: Female

DRUGS (10)
  1. INFLIXIMAB [Suspect]
     Route: 042
  2. INFLIXIMAB [Suspect]
     Indication: RHEUMATOID ARTHRITIS
     Route: 042
  3. ASPIRIN [Concomitant]
  4. FOSAMAX [Concomitant]
  5. LASIX [Concomitant]
  6. PLENDIL [Concomitant]
  7. POTASSIUM CHLORIDE [Concomitant]
  8. HUMIRA [Concomitant]
  9. TYLENOL [Concomitant]
  10. FLAX SEED OIL [Concomitant]

REACTIONS (1)
  - BASAL CELL CARCINOMA [None]
